FAERS Safety Report 9581204 (Version 3)
Quarter: 2014Q3

REPORT INFORMATION
  Report Type: Report from Study
  Country: JP (occurrence: JP)
  Receive Date: 20131002
  Receipt Date: 20140813
  Transmission Date: 20150326
  Serious: Yes (Death, Hospitalization)
  Sender: FDA-Public Use
  Company Number: JP-ROCHE-1155858

PATIENT
  Age: 64 Year
  Sex: Female
  Weight: 53 kg

DRUGS (6)
  1. THEO-SLOW [Concomitant]
     Indication: ASTHMA
     Route: 065
     Dates: start: 20091221
  2. OMALIZUMAB [Suspect]
     Active Substance: OMALIZUMAB
     Indication: ASTHMA
     Route: 058
     Dates: start: 20100625
  3. OMALIZUMAB [Suspect]
     Active Substance: OMALIZUMAB
     Dosage: NINTH SHOT OF XOLAIR
     Route: 058
     Dates: start: 20101015
  4. ONON [Concomitant]
     Active Substance: PRANLUKAST
     Indication: ASTHMA
     Route: 065
     Dates: start: 20091221
  5. ADOAIR [Concomitant]
     Active Substance: FLUTICASONE PROPIONATE\SALMETEROL XINAFOATE
     Indication: ASTHMA
     Route: 065
     Dates: start: 20041221
  6. OMALIZUMAB [Suspect]
     Active Substance: OMALIZUMAB
     Route: 065
     Dates: start: 20130608

REACTIONS (4)
  - Ileus [Unknown]
  - Colon cancer [Recovered/Resolved with Sequelae]
  - Peritonitis [Fatal]
  - Metastases to liver [Unknown]

NARRATIVE: CASE EVENT DATE: 2012
